FAERS Safety Report 11125290 (Version 1)
Quarter: 2015Q2

REPORT INFORMATION
  Report Type: Spontaneous
  Country: FR (occurrence: FR)
  Receive Date: 20150520
  Receipt Date: 20150520
  Transmission Date: 20150821
  Serious: Yes (Hospitalization)
  Sender: FDA-Public Use
  Company Number: FR-PFIZER INC-2015164544

PATIENT
  Age: 63 Year
  Sex: Male

DRUGS (8)
  1. SIMVASTATIN. [Concomitant]
     Active Substance: SIMVASTATIN
  2. PROCORALAN [Concomitant]
     Active Substance: IVABRADINE
  3. CORDARONE [Suspect]
     Active Substance: AMIODARONE HYDROCHLORIDE
     Dosage: UNK
     Route: 048
     Dates: end: 20150414
  4. ASPIRINE [Concomitant]
     Active Substance: ASPIRIN
  5. NATISPRAY [Concomitant]
     Active Substance: NITROGLYCERIN
  6. CARDENSIEL [Concomitant]
     Active Substance: BISOPROLOL FUMARATE
  7. INSPRA [Suspect]
     Active Substance: EPLERENONE
     Dosage: 25 MG, 1X/DAY
     Route: 048
     Dates: end: 20150414
  8. AUGMENTIN [Suspect]
     Active Substance: AMOXICILLIN\CLAVULANATE POTASSIUM
     Dosage: UNK
     Route: 048
     Dates: start: 201503, end: 201503

REACTIONS (1)
  - Jaundice cholestatic [Not Recovered/Not Resolved]

NARRATIVE: CASE EVENT DATE: 20150410
